FAERS Safety Report 5483688-6 (Version None)
Quarter: 2007Q4

REPORT INFORMATION
  Report Type: 
  Country: None (occurrence: None)
  Receive Date: 20071009
  Receipt Date: 20071009
  Transmission Date: 20080405
  Serious: Yes (Hospitalization)
  Sender: FDA-Public Use
  Company Number: None

PATIENT
  Age: 49 Year
  Sex: Male
  Weight: 90.9 kg

DRUGS (4)
  1. BEVACIZUMAB [Suspect]
     Indication: OESOPHAGEAL CARCINOMA
     Dosage: 10 MG QCD1 IV
     Route: 042
     Dates: start: 20060922, end: 20070914
  2. CISPLATIN [Suspect]
     Indication: OESOPHAGEAL CARCINOMA
     Dosage: 25MG/M2 QCD1AND8 IV
     Route: 042
     Dates: start: 20060922, end: 20070914
  3. DOCETAXEL [Suspect]
     Indication: OESOPHAGEAL CARCINOMA
     Dosage: 30 MG/M2 QCD1AND8 IV
     Route: 042
     Dates: start: 20060922, end: 20070914
  4. IRINOTECAN HCL [Suspect]
     Indication: OESOPHAGEAL CARCINOMA
     Dosage: 50MG/M2 QCD1AND8 IV
     Route: 042
     Dates: start: 20060922, end: 20070914

REACTIONS (7)
  - DEHYDRATION [None]
  - DIARRHOEA HAEMORRHAGIC [None]
  - DISEASE PROGRESSION [None]
  - DYSPNOEA [None]
  - HYPOTENSION [None]
  - SMALL INTESTINAL OBSTRUCTION [None]
  - WEST NILE VIRAL INFECTION [None]
